FAERS Safety Report 24976125 (Version 1)
Quarter: 2025Q1

REPORT INFORMATION
  Report Type: Spontaneous
  Country: BR (occurrence: BR)
  Receive Date: 20250217
  Receipt Date: 20250217
  Transmission Date: 20250408
  Serious: Yes (Death, Hospitalization, Other)
  Sender: RANBAXY
  Company Number: BR-SUN PHARMACEUTICAL INDUSTRIES LTD-2025R1-494268

PATIENT
  Age: 15 Year
  Sex: Female
  Weight: 54 kg

DRUGS (2)
  1. QUETIAPINE [Suspect]
     Active Substance: QUETIAPINE
     Indication: Product used for unknown indication
     Route: 048
  2. VALPROIC ACID [Suspect]
     Active Substance: VALPROIC ACID
     Indication: Product used for unknown indication
     Route: 048

REACTIONS (11)
  - Cardio-respiratory arrest [Fatal]
  - Toxicity to various agents [Fatal]
  - Klebsiella infection [Fatal]
  - Overdose [Fatal]
  - Multiple organ dysfunction syndrome [Fatal]
  - Coagulopathy [Fatal]
  - Hypovolaemic shock [Fatal]
  - Metabolic acidosis [Fatal]
  - Arrhythmia [Fatal]
  - Pneumonia aspiration [Fatal]
  - Escherichia bacteraemia [Fatal]
